FAERS Safety Report 18251883 (Version 1)
Quarter: 2020Q3

REPORT INFORMATION
  Report Type: Spontaneous
  Country: US (occurrence: US)
  Receive Date: 20200909
  Receipt Date: 20200909
  Transmission Date: 20201103
  Serious: No
  Sender: FDA-Public Use
  Company Number: None

PATIENT
  Age: 65 Year
  Sex: Male

DRUGS (24)
  1. AZITHROMYCIN ANHYDROUS. [Concomitant]
     Active Substance: AZITHROMYCIN ANHYDROUS
  2. FORTEO [Suspect]
     Active Substance: TERIPARATIDE
     Indication: ACUTE GRAFT VERSUS HOST DISEASE
     Route: 058
     Dates: start: 20190911
  3. GABAPENTIN. [Concomitant]
     Active Substance: GABAPENTIN
  4. NEOMYCIN/ POLYMYXIN/ DEXAME [Concomitant]
  5. URSODIOL. [Concomitant]
     Active Substance: URSODIOL
  6. CLOBETASOL PROPIONATE. [Concomitant]
     Active Substance: CLOBETASOL PROPIONATE
  7. MIRTAZAPINE. [Concomitant]
     Active Substance: MIRTAZAPINE
  8. LEVOFLOXACIN. [Concomitant]
     Active Substance: LEVOFLOXACIN
  9. LIDOCAINE. [Concomitant]
     Active Substance: LIDOCAINE
  10. DEXAMETHASONE. [Concomitant]
     Active Substance: DEXAMETHASONE
  11. ROSUVASTATIN CALCIUM. [Concomitant]
     Active Substance: ROSUVASTATIN CALCIUM
  12. IPRATROPIUM BROMIDE. [Concomitant]
     Active Substance: IPRATROPIUM BROMIDE
  13. POLYETHYLENE GLYCOL 3350. [Concomitant]
     Active Substance: POLYETHYLENE GLYCOL 3350
  14. FLUTICASONE PROPIONATE. [Concomitant]
     Active Substance: FLUTICASONE PROPIONATE
  15. COLACE [Concomitant]
     Active Substance: DOCUSATE SODIUM
  16. MUCINEX,BUDESONIDE [Concomitant]
  17. VALACYCLOVIR HCL [Concomitant]
     Active Substance: VALACYCLOVIR HYDROCHLORIDE
  18. TRIAMCINOLONE ACETON SULFAMETHOXAZOLE [Concomitant]
  19. CYCLOBENZAPRINE HCL ER [Concomitant]
  20. PILOCARPINE HCL [Concomitant]
     Active Substance: PILOCARPINE HYDROCHLORIDE
  21. TRAMADOL HCL [Concomitant]
     Active Substance: TRAMADOL HYDROCHLORIDE
  22. OMEPRAZOLE. [Concomitant]
     Active Substance: OMEPRAZOLE
  23. OXYBENZONE [Concomitant]
     Active Substance: OXYBENZONE
  24. FLUCONAZOLE. [Concomitant]
     Active Substance: FLUCONAZOLE

REACTIONS (1)
  - Throat cancer [None]

NARRATIVE: CASE EVENT DATE: 20200908
